FAERS Safety Report 6698685-2 (Version None)
Quarter: 2010Q2

REPORT INFORMATION
  Report Type: 
  Country: None (occurrence: None)
  Receive Date: 20100427
  Receipt Date: 20090828
  Transmission Date: 20101027
  Serious: No
  Sender: FDA-Public Use
  Company Number: US-ASTRAZENECA-2009SE10527

PATIENT

DRUGS (1)
  1. ZOMIG [Suspect]
     Route: 065

REACTIONS (1)
  - NEUROGENIC BLADDER [None]
